FAERS Safety Report 24610533 (Version 5)
Quarter: 2025Q3

REPORT INFORMATION
  Report Type: Report from Study
  Country: US (occurrence: US)
  Receive Date: 20241112
  Receipt Date: 20250724
  Transmission Date: 20251021
  Serious: No
  Sender: SUNOVION
  Company Number: US-SUMITOMO PHARMA SWITZERLAND GMBH-2024SPA002015

PATIENT

DRUGS (4)
  1. ORGOVYX [Suspect]
     Active Substance: RELUGOLIX
     Indication: Prostate cancer
     Route: 048
  2. ORGOVYX [Suspect]
     Active Substance: RELUGOLIX
     Dosage: 120 MG, QD
     Route: 048
     Dates: start: 20240411
  3. ORGOVYX [Suspect]
     Active Substance: RELUGOLIX
     Route: 048
     Dates: start: 20240411, end: 20240411
  4. ORGOVYX [Suspect]
     Active Substance: RELUGOLIX
     Route: 048
     Dates: start: 20240412

REACTIONS (9)
  - Pruritus [Unknown]
  - Tremor [Not Recovered/Not Resolved]
  - Rash pruritic [Unknown]
  - Glycosylated haemoglobin increased [Unknown]
  - Chills [Unknown]
  - Blood glucose increased [Recovering/Resolving]
  - Blood triglycerides increased [Recovering/Resolving]
  - Insomnia [Unknown]
  - Asthenia [Unknown]
